FAERS Safety Report 9704530 (Version 1)
Quarter: 2013Q4

REPORT INFORMATION
  Report Type: Spontaneous
  Country: US (occurrence: None)
  Receive Date: 20131121
  Receipt Date: 20131121
  Transmission Date: 20140711
  Serious: Yes (Other)
  Sender: FDA-Public Use
  Company Number: None

PATIENT
  Age: 62 Year
  Sex: Male
  Weight: 92.53 kg

DRUGS (9)
  1. LAMICTAL [Suspect]
     Indication: DEPRESSION
     Dosage: 100 MG, 1/2 TABLET ONCE DAILY
     Route: 048
  2. LAMICTAL [Suspect]
     Indication: PSYCHOTIC DISORDER
     Dosage: 100 MG, 1/2 TABLET ONCE DAILY
     Route: 048
  3. FLOMAX [Concomitant]
  4. TRAMADOL [Concomitant]
  5. SEROQYEK [Concomitant]
  6. PRILOSEC [Concomitant]
  7. PEPCID [Concomitant]
  8. FEOFIBROTE [Concomitant]
  9. FISH OIL [Concomitant]

REACTIONS (2)
  - Petechiae [None]
  - Pain in extremity [None]
